FAERS Safety Report 9603813 (Version 1)
Quarter: 2013Q4

REPORT INFORMATION
  Report Type: Report from Study
  Country: US (occurrence: US)
  Receive Date: 20131008
  Receipt Date: 20131008
  Transmission Date: 20140711
  Serious: Yes (Hospitalization)
  Sender: FDA-Public Use
  Company Number: US-ROCHE-1285065

PATIENT
  Age: 8 Year
  Sex: Male

DRUGS (3)
  1. BEVACIZUMAB [Suspect]
     Indication: BRAIN STEM GLIOMA
     Route: 065
  2. TEMOZOLOMIDE [Suspect]
     Indication: BRAIN STEM GLIOMA
     Dosage: MONDAY THROUGH FRIDAY CONTINUOUSLY
     Route: 048
  3. IRINOTECAN [Suspect]
     Indication: BRAIN STEM GLIOMA
     Dosage: FOR 2 WEEKS FOLLOWED BY 1 WEEK BREAK
     Route: 065

REACTIONS (5)
  - Diarrhoea [Unknown]
  - Abdominal pain [Unknown]
  - Dehydration [Unknown]
  - Hypokalaemia [Unknown]
  - Hypertension [Unknown]
